FAERS Safety Report 14567236 (Version 12)
Quarter: 2025Q4

REPORT INFORMATION
  Report Type: Spontaneous
  Country: EU (occurrence: EU)
  Receive Date: 20180223
  Receipt Date: 20251110
  Transmission Date: 20260117
  Serious: Yes (Life-Threatening, Congenital Anomaly, Other)
  Sender: AUROBINDO
  Company Number: None

PATIENT
  Sex: Female

DRUGS (2)
  1. ACETAMINOPHEN [Suspect]
     Active Substance: ACETAMINOPHEN
     Indication: Pain
     Dosage: 3000 MILLIGRAM, DAILY
     Route: 064
  2. ACETAMINOPHEN [Suspect]
     Active Substance: ACETAMINOPHEN
     Indication: Analgesic therapy

REACTIONS (12)
  - Aspartate aminotransferase increased [Unknown]
  - Cardiomyopathy neonatal [Recovering/Resolving]
  - Ductus arteriosus premature closure [Unknown]
  - Food interaction [Unknown]
  - Neonatal respiratory distress syndrome [Recovered/Resolved]
  - Pulmonary artery stenosis congenital [Recovered/Resolved]
  - Right ventricular dysfunction [Recovered/Resolved]
  - Troponin increased [Unknown]
  - Drug interaction [Unknown]
  - Foetal exposure during pregnancy [Unknown]
  - Patent ductus arteriosus [Unknown]
  - Pulmonary artery stenosis [Unknown]
